FAERS Safety Report 4312761-0 (Version None)
Quarter: 2004Q1

REPORT INFORMATION
  Report Type: 
  Country: None (occurrence: None)
  Receive Date: 20040305
  Receipt Date: 20040226
  Transmission Date: 20041129
  Serious: Yes (Other)
  Sender: FDA-Public Use
  Company Number: 04-02-0299

PATIENT
  Age: 45 Year
  Sex: Female

DRUGS (1)
  1. CLOZAPINE [Suspect]
     Dosage: 175-725MG QD ORAL
     Route: 048
     Dates: start: 20000201

REACTIONS (1)
  - BREAST CANCER RECURRENT [None]
